FAERS Safety Report 7874398-6 (Version None)
Quarter: 2011Q4

REPORT INFORMATION
  Report Type: 
  Country: None (occurrence: None)
  Receive Date: 20111030
  Receipt Date: 20110519
  Transmission Date: 20120403
  Serious: No
  Sender: FDA-Public Use
  Company Number: US-AMGEN-USASP2011026004

PATIENT
  Age: 68 Year
  Sex: Female
  Weight: 43.084 kg

DRUGS (7)
  1. NEURONTIN [Concomitant]
     Dosage: 100 MG, UNK
     Route: 048
  2. GLUCOSAMINE CHONDROINATO [Concomitant]
     Dosage: UNK
     Route: 048
  3. VITAMIN B12                        /00056201/ [Concomitant]
     Dosage: UNK
     Route: 048
  4. FOLIC ACID [Concomitant]
     Dosage: 1 MG, UNK
     Route: 048
  5. ENBREL [Suspect]
     Indication: PRODUCT USED FOR UNKNOWN INDICATION
     Dosage: 50 MG, QWK
     Route: 058
  6. CALCIUM +D                         /00188401/ [Concomitant]
     Dosage: UNK
     Route: 048
  7. TYLENOL-500 [Concomitant]
     Dosage: 650 MG, UNK
     Route: 048

REACTIONS (1)
  - FUNGAL INFECTION [None]
